FAERS Safety Report 17777985 (Version 2)
Quarter: 2020Q2

REPORT INFORMATION
  Report Type: Spontaneous
  Country: US (occurrence: US)
  Receive Date: 20200513
  Receipt Date: 20200610
  Transmission Date: 20200714
  Serious: No
  Sender: FDA-Public Use
  Company Number: US-PFIZER INC-2019129189

PATIENT
  Age: 12 Month
  Sex: Female

DRUGS (1)
  1. EUCRISA [Suspect]
     Active Substance: CRISABOROLE
     Indication: DERMATITIS ATOPIC
     Dosage: APPLY TO AFFECTED AREAS ON BODY ONCE A DAY

REACTIONS (6)
  - Product use issue [Unknown]
  - Skin burning sensation [Unknown]
  - Eczema infantile [Unknown]
  - Condition aggravated [Unknown]
  - Off label use [Unknown]
  - Skin irritation [Unknown]
